FAERS Safety Report 6381297-8 (Version None)
Quarter: 2009Q3

REPORT INFORMATION
  Report Type: 
  Country: None (occurrence: None)
  Receive Date: 20090929
  Receipt Date: 20090918
  Transmission Date: 20100115
  Serious: Yes (Hospitalization)
  Sender: FDA-Public Use
  Company Number: FR-PFIZER INC-2009270878

PATIENT
  Age: 94 Year

DRUGS (7)
  1. CELEBREX [Suspect]
     Dosage: 100 MG, ALTERNATE DAY
     Route: 048
     Dates: start: 20090101, end: 20090716
  2. KARDEGIC [Interacting]
     Dosage: 75 MG, 1X/DAY
     Route: 048
     Dates: start: 20090101, end: 20090716
  3. SPIROCTAZINE [Concomitant]
     Dosage: UNK
     Route: 048
     Dates: start: 20090101
  4. NULYTELY [Concomitant]
     Dosage: UNK
     Dates: start: 20090101
  5. DITROPAN [Concomitant]
     Dosage: UNK
     Route: 048
     Dates: start: 20090101
  6. DI-ANTALVIC [Concomitant]
     Dosage: UNK
     Route: 048
     Dates: start: 20090101
  7. EFFERALGAN [Concomitant]
     Dosage: UNK
     Route: 048
     Dates: start: 20090101

REACTIONS (2)
  - DRUG INTERACTION [None]
  - RECTAL HAEMORRHAGE [None]
